FAERS Safety Report 5161888-2 (Version None)
Quarter: 2006Q4

REPORT INFORMATION
  Report Type: 
  Country: None (occurrence: None)
  Receive Date: 20061130
  Receipt Date: 20061017
  Transmission Date: 20070319
  Serious: No
  Sender: FDA-Public Use
  Company Number: US-GLAXOSMITHKLINE-A0623896A

PATIENT
  Age: 37 Year
  Sex: Female

DRUGS (2)
  1. WELLBUTRIN XL [Suspect]
     Indication: LIBIDO DECREASED
     Dosage: 150MG PER DAY
     Route: 048
     Dates: start: 20061011
  2. ZOLOFT [Concomitant]

REACTIONS (3)
  - COLD SWEAT [None]
  - FEELING HOT [None]
  - HYPERHIDROSIS [None]
